FAERS Safety Report 9986242 (Version 2)
Quarter: 2014Q1

REPORT INFORMATION
  Report Type: Report from Study
  Country: US (occurrence: US)
  Receive Date: 20140307
  Receipt Date: 20140307
  Transmission Date: 20141002
  Serious: Yes (Hospitalization)
  Sender: FDA-Public Use
  Company Number: US-ABBVIE-13P-163-1031639-00

PATIENT
  Age: 69 Year
  Sex: Female
  Weight: 87.62 kg

DRUGS (23)
  1. HUMIRA [Suspect]
     Indication: CROHN^S DISEASE
     Dates: start: 20120925
  2. HUMIRA [Suspect]
     Dates: start: 20130214
  3. VITAMIN B12 [Concomitant]
     Indication: PRODUCT USED FOR UNKNOWN INDICATION
     Dosage: DAILY
  4. LUTEIN [Concomitant]
     Indication: EYE DISORDER
     Dosage: DAILY
  5. CALCIUM [Concomitant]
     Indication: FRACTURE
  6. CALCIUM [Concomitant]
     Indication: PROPHYLAXIS
  7. LEVOTHYROXINE [Concomitant]
     Indication: THYROID DISORDER
  8. SERTRALINE HCL [Concomitant]
     Indication: PRODUCT USED FOR UNKNOWN INDICATION
  9. LISINOPRIL HCTZ [Concomitant]
     Indication: SUBCLAVIAN STEAL SYNDROME
     Dosage: 20-12.5 MG
  10. LUMIGAN [Concomitant]
     Indication: PRODUCT USED FOR UNKNOWN INDICATION
     Dosage: DAILY
  11. DONEPEZIL HCL [Concomitant]
     Indication: PRODUCT USED FOR UNKNOWN INDICATION
     Dosage: MAX OF 4 TABS PER DAY, AS NEEDED ONLY
  12. ALPRAZOLAM [Concomitant]
     Indication: PANIC ATTACK
  13. PREDNISONE [Concomitant]
     Indication: PRODUCT USED FOR UNKNOWN INDICATION
  14. METRONIDAZOLE [Concomitant]
     Indication: INFECTION PROPHYLAXIS
  15. NAMENDA [Concomitant]
     Indication: PRODUCT USED FOR UNKNOWN INDICATION
     Dosage: AT LUNCHTIME
  16. PENTASA [Concomitant]
     Indication: CROHN^S DISEASE
  17. PROBIOTICS [Concomitant]
     Indication: PRODUCT USED FOR UNKNOWN INDICATION
     Dosage: DAILY
  18. DIPHENOXYLATE/ATROPINE [Concomitant]
     Indication: PRODUCT USED FOR UNKNOWN INDICATION
  19. PANTOPRAZOLE [Concomitant]
     Indication: IMMUNE SYSTEM DISORDER
  20. UNKNOWN OINTMENT [Concomitant]
     Indication: LOCAL SWELLING
  21. CHOLESTEROL MED [Concomitant]
     Indication: PRODUCT USED FOR UNKNOWN INDICATION
     Dosage: 10MG AT LUNCH TIME
  22. ARICEPT [Concomitant]
     Indication: PRODUCT USED FOR UNKNOWN INDICATION
     Dosage: EVERY MORNING
  23. BABY ASPIRIN [Concomitant]
     Indication: PRODUCT USED FOR UNKNOWN INDICATION

REACTIONS (14)
  - Atypical pneumonia [Recovered/Resolved]
  - Bronchitis [Unknown]
  - Amnesia [Unknown]
  - Back injury [Unknown]
  - Crohn^s disease [Recovering/Resolving]
  - Weight decreased [Unknown]
  - Lactose intolerance [Unknown]
  - Glucose tolerance impaired [Unknown]
  - Coeliac disease [Unknown]
  - Patella fracture [Unknown]
  - Muscle strain [Unknown]
  - Abdominal pain upper [Unknown]
  - Stress [Unknown]
  - Fall [Unknown]
